FAERS Safety Report 9457723 (Version 1)
Quarter: 2013Q3

REPORT INFORMATION
  Report Type: Spontaneous
  Country: CA (occurrence: None)
  Receive Date: 20130812
  Receipt Date: 20130812
  Transmission Date: 20140515
  Serious: Yes (Hospitalization)
  Sender: FDA-Public Use
  Company Number: AG-2012-1385

PATIENT
  Age: 79 Year
  Sex: Male
  Weight: 103.9 kg

DRUGS (17)
  1. CHLORAMBUCIL [Suspect]
     Indication: CHRONIC LYMPHOCYTIC LEUKAEMIA
     Dosage: DAY 1 AND DAY 15
     Route: 048
     Dates: start: 20120523
  2. OBINUTUZUMAB (MONOCLONAL ANTIBODIES) (UNKNOWN) [Suspect]
     Indication: CHRONIC LYMPHOCYTIC LEUKAEMIA
     Dosage: NOT OTHERWISE SPECIFIED
     Route: 042
     Dates: start: 20120523
  3. TYLENOL [Suspect]
     Indication: PRODUCT USED FOR UNKNOWN INDICATION
  4. NPH HUMAN INSULIN ISOPHANE SUSPENSION [Concomitant]
  5. XALATAN [Concomitant]
  6. SYMBICORT [Concomitant]
  7. BETADERM [Concomitant]
  8. PREDNISONE [Concomitant]
  9. FOLIC ACID [Concomitant]
  10. LOSEC [Concomitant]
  11. GLUCOBAY [Concomitant]
  12. RAMIPRIL [Concomitant]
  13. LASIX [Concomitant]
  14. ACTOS [Concomitant]
  15. AVAPRO [Concomitant]
  16. LIPITOR [Concomitant]
  17. ZOPLICLONE [Concomitant]

REACTIONS (3)
  - Pneumonia aspiration [None]
  - Neutropenia [None]
  - Vomiting [None]
